FAERS Safety Report 4501725-X (Version None)
Quarter: 2004Q4

REPORT INFORMATION
  Report Type: 
  Country: None (occurrence: None)
  Receive Date: 20040927
  Receipt Date: 20040614
  Transmission Date: 20050328
  Serious: Yes (Hospitalization)
  Sender: FDA-Public Use
  Company Number: USA040670044

PATIENT
  Sex: Female

DRUGS (1)
  1. STRATTERA [Suspect]
     Dates: end: 20040503

REACTIONS (4)
  - ABDOMINAL PAIN [None]
  - BLOOD PRESSURE INCREASED [None]
  - CHEST PAIN [None]
  - TACHYCARDIA [None]
